FAERS Safety Report 5556940-3 (Version None)
Quarter: 2007Q4

REPORT INFORMATION
  Report Type: 
  Country: None (occurrence: None)
  Receive Date: 20071210
  Receipt Date: 20071210
  Transmission Date: 20080405
  Serious: Yes (Other)
  Sender: FDA-Public Use
  Company Number: None

PATIENT
  Age: 54 Year
  Sex: Male
  Weight: 70.3075 kg

DRUGS (3)
  1. NARDIL [Suspect]
     Indication: ANXIETY
     Dosage: 45MG  DAY
     Dates: start: 19850114, end: 20071209
  2. NARDIL [Suspect]
     Indication: DEPRESSION
     Dosage: 45MG  DAY
     Dates: start: 19850114, end: 20071209
  3. NARDIL [Suspect]
     Indication: OBSESSIVE-COMPULSIVE DISORDER
     Dosage: 45MG  DAY
     Dates: start: 19850114, end: 20071209

REACTIONS (7)
  - ASTHENIA [None]
  - BALANCE DISORDER [None]
  - CONVULSION [None]
  - DIZZINESS [None]
  - FEELING ABNORMAL [None]
  - MEMORY IMPAIRMENT [None]
  - PHARMACEUTICAL PRODUCT COMPLAINT [None]
